FAERS Safety Report 15473734 (Version 1)
Quarter: 2018Q4

REPORT INFORMATION
  Report Type: Spontaneous
  Country: GB (occurrence: GB)
  Receive Date: 20181008
  Receipt Date: 20181008
  Transmission Date: 20190205
  Serious: Yes (Other)
  Sender: FDA-Public Use
  Company Number: GB-BAYER-2018-186288

PATIENT
  Age: 86 Year
  Sex: Female

DRUGS (1)
  1. ASPRO CLEAR 300 MG [Suspect]
     Active Substance: ASPIRIN
     Dosage: 300 MG, UNK

REACTIONS (2)
  - Contraindicated product administered [Unknown]
  - Platelet disorder [Unknown]

NARRATIVE: CASE EVENT DATE: 20171011
